FAERS Safety Report 6019916-8 (Version None)
Quarter: 2008Q4

REPORT INFORMATION
  Report Type: 
  Country: None (occurrence: None)
  Receive Date: 20081223
  Receipt Date: 20081209
  Transmission Date: 20090506
  Serious: Yes (Other)
  Sender: FDA-Public Use
  Company Number: 2008US003370

PATIENT
  Age: 8 Month
  Sex: Male

DRUGS (13)
  1. PROGRAF [Suspect]
     Indication: LUNG TRANSPLANT
     Dosage: 0.04 MG/KG, BID, ORAL
     Route: 048
  2. AZATHIOPRINE [Suspect]
     Indication: LUNG TRANSPLANT
     Dosage: 3 MG/KG, IV NOS, 1 MG/KG,UID/QD, IV
     Route: 042
  3. MYCOPHENOLATE MOFETIL [Suspect]
     Indication: LUNG TRANSPLANT
     Dosage: 600 MG/M2, BID, ORAL
     Route: 048
  4. METHYLPREDNISOLONE 16MG TAB [Suspect]
     Indication: LUNG TRANSPLANT
     Dosage: 2 MG/KG, BID IV, NOS
     Route: 042
  5. PREDNISOLONE [Suspect]
     Indication: LUNG TRANSPLANT
     Dosage: 1 MG/KG, UID/QD, ORAL
     Route: 048
  6. VANCOMYCIN [Concomitant]
  7. CEFEPIME [Concomitant]
  8. GANCICLOVIR [Concomitant]
  9. CYTOMEGALOVIRUS IMMUNE GLOBULIN (IMMUNOGLOBULIN CYTOMEGALOVIRUS) [Concomitant]
  10. TOBRAMYCIN (TOBRAMYCIN) AEROSOL [Concomitant]
  11. AMPHOTERICIN B, LIPOSOME (AMPHOTERICIN B, LIPOSOME) AEROSOL [Concomitant]
  12. ITRACONAZOLE [Concomitant]
  13. TRIMETHOPRIM + SULFAMETHOXAZOLE [Concomitant]

REACTIONS (7)
  - COMPLICATIONS OF TRANSPLANTED LUNG [None]
  - HLA MARKER STUDY POSITIVE [None]
  - LUNG INFILTRATION [None]
  - LUNG TRANSPLANT REJECTION [None]
  - PULMONARY ALVEOLAR HAEMORRHAGE [None]
  - PULMONARY VASCULAR DISORDER [None]
  - RESPIRATORY DISTRESS [None]
